FAERS Safety Report 12739167 (Version 3)
Quarter: 2016Q4

REPORT INFORMATION
  Report Type: Report from Study
  Country: DE (occurrence: DE)
  Receive Date: 20160912
  Receipt Date: 20161104
  Transmission Date: 20170207
  Serious: Yes (Hospitalization)
  Sender: FDA-Public Use
  Company Number: DE-PFIZER INC-2016414406

PATIENT
  Age: 49 Year
  Sex: Female
  Weight: 59.8 kg

DRUGS (5)
  1. CISPLATIN. [Concomitant]
     Active Substance: CISPLATIN
     Dosage: 172 MG, UNK
     Dates: start: 20160811
  2. RITUXIMAB [Concomitant]
     Active Substance: RITUXIMAB
     Dosage: 637.5 MG, UNK
     Dates: start: 20160810
  3. DEXAMETHASON [Concomitant]
     Active Substance: DEXAMETHASONE
     Dosage: 40 MG, UNK
     Dates: start: 20160811
  4. TEMSIROLIMUS [Suspect]
     Active Substance: TEMSIROLIMUS
     Dosage: 25 MG, CYCLIC (EACH CYCLE ON DAY 1 AND DAY 8)
     Route: 042
     Dates: start: 20160809
  5. CYTARABIN [Concomitant]
     Active Substance: CYTARABINE
     Dosage: 3400 MG, UNK
     Dates: start: 20160812

REACTIONS (2)
  - Thrombocytopenia [Recovered/Resolved]
  - Febrile neutropenia [Recovered/Resolved]

NARRATIVE: CASE EVENT DATE: 20160823
